FAERS Safety Report 19422958 (Version 2)
Quarter: 2021Q2

REPORT INFORMATION
  Report Type: Spontaneous
  Country: US (occurrence: US)
  Receive Date: 20210616
  Receipt Date: 20210630
  Transmission Date: 20210717
  Serious: Yes (Other)
  Sender: FDA-Public Use
  Company Number: US-AUROBINDO-AUR-APL-2021-021137

PATIENT
  Age: 14 Year
  Sex: Female
  Weight: 63.5 kg

DRUGS (2)
  1. MIDODRINE HYDROCHLORIDE TABLETS USP, 5 MG [Suspect]
     Active Substance: MIDODRINE HYDROCHLORIDE
     Indication: HYPOTENSION
     Dosage: 5 MILLIGRAM, EVERY MORNING
     Route: 048
     Dates: start: 20210515, end: 20210515
  2. MIDODRINE HYDROCHLORIDE TABLETS USP, 5 MG [Suspect]
     Active Substance: MIDODRINE HYDROCHLORIDE
     Dosage: 5 MILLIGRAM, EVERY MORNING
     Route: 048
     Dates: start: 20210517, end: 20210517

REACTIONS (4)
  - Product dose omission issue [Unknown]
  - Tremor [Recovered/Resolved]
  - Product substitution issue [Unknown]
  - Heart rate increased [Recovered/Resolved]

NARRATIVE: CASE EVENT DATE: 20210515
